FAERS Safety Report 21877240 (Version 1)
Quarter: 2023Q1

REPORT INFORMATION
  Report Type: Spontaneous
  Country: US (occurrence: None)
  Receive Date: 20230116
  Receipt Date: 20230116
  Transmission Date: 20230418
  Serious: Yes (Other)
  Sender: FDA-Public Use
  Company Number: None

PATIENT
  Age: 16 Year
  Sex: Female
  Weight: 53.07 kg

DRUGS (1)
  1. METHYLPHENIDATE [Suspect]
     Active Substance: METHYLPHENIDATE

REACTIONS (2)
  - Anxiety [None]
  - Insomnia [None]

NARRATIVE: CASE EVENT DATE: 20210207
